FAERS Safety Report 4964153-9 (Version None)
Quarter: 2006Q1

REPORT INFORMATION
  Report Type: 
  Country: None (occurrence: None)
  Receive Date: 20060330
  Receipt Date: 20060323
  Transmission Date: 20060701
  Serious: Yes (Other)
  Sender: FDA-Public Use
  Company Number: S06-USA-01173-02

PATIENT

DRUGS (2)
  1. NAMENDA [Suspect]
  2. EXELON [Concomitant]

REACTIONS (2)
  - MENTAL IMPAIRMENT [None]
  - SUICIDAL IDEATION [None]
